FAERS Safety Report 4784167-1 (Version None)
Quarter: 2005Q3

REPORT INFORMATION
  Report Type: 
  Country: None (occurrence: None)
  Receive Date: 20050930
  Receipt Date: 20050822
  Transmission Date: 20060218
  Serious: No
  Sender: FDA-Public Use
  Company Number: US-GLAXOSMITHKLINE-A0571249A

PATIENT
  Age: 7 Year
  Sex: Male
  Weight: 23.6 kg

DRUGS (1)
  1. FLOVENT [Suspect]
     Indication: DRUG USE FOR UNKNOWN INDICATION
     Dosage: 1PUFF PER DAY
     Route: 048
     Dates: start: 20050722

REACTIONS (3)
  - PRURITUS [None]
  - RASH [None]
  - THERMAL BURN [None]
